FAERS Safety Report 18702608 (Version 1)
Quarter: 2021Q1

REPORT INFORMATION
  Report Type: Spontaneous
  Country: US (occurrence: US)
  Receive Date: 20210105
  Receipt Date: 20210105
  Transmission Date: 20210419
  Serious: Yes (Hospitalization)
  Sender: FDA-Public Use
  Company Number: US-BAYER-2020-286862

PATIENT
  Age: 66 Year
  Sex: Male

DRUGS (1)
  1. CIPROFLOXACIN. [Suspect]
     Active Substance: CIPROFLOXACIN
     Indication: INFECTION PROPHYLAXIS

REACTIONS (5)
  - Pathogen resistance [None]
  - Perihepatic abscess [None]
  - Septic shock [None]
  - Off label use [None]
  - Product use in unapproved indication [None]
